FAERS Safety Report 7723255-4 (Version None)
Quarter: 2011Q3

REPORT INFORMATION
  Report Type: 
  Country: None (occurrence: None)
  Receive Date: 20110901
  Receipt Date: 20110822
  Transmission Date: 20111222
  Serious: Yes (Other)
  Sender: FDA-Public Use
  Company Number: US-NAPPMUNDI-USA-2011-0074017

PATIENT
  Sex: Female

DRUGS (2)
  1. OXYCODONE HCL TABLETS (91-490) [Concomitant]
     Indication: BREAKTHROUGH PAIN
     Dosage: 30 MG, UNK
  2. OXYCONTIN [Suspect]
     Indication: PRODUCT USED FOR UNKNOWN INDICATION
     Dosage: UNK, SEE TEXT
     Route: 048

REACTIONS (5)
  - INSULIN RESISTANCE [None]
  - SPINAL FUSION SURGERY [None]
  - GLUCOSE TOLERANCE IMPAIRED [None]
  - ADDISON'S DISEASE [None]
  - INTERVERTEBRAL DISC OPERATION [None]
